FAERS Safety Report 6419346-0 (Version None)
Quarter: 2009Q4

REPORT INFORMATION
  Report Type: 
  Country: None (occurrence: None)
  Receive Date: 20091029
  Receipt Date: 20091022
  Transmission Date: 20100525
  Serious: Yes (Hospitalization)
  Sender: FDA-Public Use
  Company Number: JP-BAYER-200914016BYL

PATIENT
  Age: 74 Year
  Sex: Male
  Weight: 53 kg

DRUGS (5)
  1. CIPROXAN-I.V. [Suspect]
     Indication: PNEUMONIA
     Dosage: TOTAL DAILY DOSE: 600 MG  UNIT DOSE: 300 MG
     Route: 041
     Dates: start: 20081030, end: 20081106
  2. MEROPEN [Concomitant]
     Indication: PNEUMONIA
     Dosage: TOTAL DAILY DOSE: 1 G
     Route: 042
     Dates: start: 20081107, end: 20081116
  3. SOLU-MEDROL [Concomitant]
     Route: 042
     Dates: start: 20081107, end: 20081109
  4. PREDNISOLONE [Concomitant]
     Route: 048
     Dates: start: 20081110
  5. SEISHOKU [Concomitant]
     Dosage: TOTAL DAILY DOSE: 200 ML
     Route: 041
     Dates: start: 20081030, end: 20081106

REACTIONS (1)
  - INTERSTITIAL LUNG DISEASE [None]
